FAERS Safety Report 5506011-7 (Version None)
Quarter: 2007Q4

REPORT INFORMATION
  Report Type: 
  Country: None (occurrence: None)
  Receive Date: 20071101
  Receipt Date: 20071101
  Transmission Date: 20080405
  Serious: Yes (Hospitalization)
  Sender: FDA-Public Use
  Company Number: None

PATIENT
  Age: 78 Year
  Sex: Male

DRUGS (1)
  1. PRIMAXIN [Suspect]
     Indication: INFECTION
     Dosage: 500 MG Q6H IV
     Route: 042
     Dates: start: 20070806, end: 20070823

REACTIONS (1)
  - THROMBOCYTOPENIA [None]
